FAERS Safety Report 25328174 (Version 1)
Quarter: 2025Q2

REPORT INFORMATION
  Report Type: Spontaneous
  Country: DE (occurrence: DE)
  Receive Date: 20250518
  Receipt Date: 20250518
  Transmission Date: 20250717
  Serious: Yes (Hospitalization, Other)
  Sender: DEXCEL
  Company Number: None

PATIENT
  Age: 61 Year
  Sex: Female
  Weight: 52 kg

DRUGS (1)
  1. PANTOPRAZOLE SODIUM [Suspect]
     Active Substance: PANTOPRAZOLE SODIUM
     Indication: Nausea
     Dosage: 1-0-0
     Route: 048
     Dates: start: 20250415, end: 20250422

REACTIONS (4)
  - Epilepsy [Not Recovered/Not Resolved]
  - Epilepsy [Unknown]
  - Epilepsy [Unknown]
  - Bradycardia [Unknown]

NARRATIVE: CASE EVENT DATE: 20250401
